FAERS Safety Report 9763501 (Version 3)
Quarter: 2013Q4

REPORT INFORMATION
  Report Type: Report from Study
  Country: ES (occurrence: ES)
  Receive Date: 20131216
  Receipt Date: 20131224
  Transmission Date: 20140711
  Serious: Yes (Life-Threatening, Hospitalization)
  Sender: FDA-Public Use
  Company Number: PHHO2013ES016132

PATIENT
  Sex: 0

DRUGS (9)
  1. STI571 [Suspect]
     Indication: GASTROINTESTINAL STROMAL TUMOUR
     Dosage: 400 MG, QD
     Route: 048
     Dates: start: 20130918, end: 20131210
  2. BYL719 [Suspect]
     Indication: GASTROINTESTINAL STROMAL TUMOUR
     Dosage: 350 MG, QD
     Route: 048
     Dates: start: 20130926, end: 20131210
  3. SIMVASTATIN [Concomitant]
     Indication: HYPERCHOLESTEROLAEMIA
     Dosage: 20 MG, QD
     Route: 048
     Dates: end: 20131210
  4. LANSOPRAZOLE [Concomitant]
     Indication: PROPHYLAXIS
     Dosage: 25 MG, QD
     Route: 048
     Dates: start: 20130918, end: 20131210
  5. BENADON [Concomitant]
     Indication: SUPPLEMENTATION THERAPY
     Dosage: 300 MG, QD
     Route: 048
     Dates: end: 20131210
  6. SYRON [Concomitant]
     Indication: IRON DEFICIENCY ANAEMIA
     Dosage: 40 MG, QD
     Route: 048
     Dates: start: 20131017, end: 20131210
  7. GLIMEPIRIDA [Concomitant]
     Indication: HYPERGLYCAEMIA
     Dosage: 1 NG, QD
     Route: 048
     Dates: start: 20131030, end: 20131210
  8. SALVACOLL [Concomitant]
     Indication: DIARRHOEA
     Dosage: 2 MG/12. 48
     Route: 048
     Dates: start: 20131116, end: 20131210
  9. NATECAL [Concomitant]
     Indication: HYPOCALCAEMIA
     Dosage: 1200 UG, QD
     Route: 048
     Dates: start: 20131003, end: 20131210

REACTIONS (6)
  - Peritoneal haemorrhage [Recovering/Resolving]
  - Intestinal haemorrhage [Recovering/Resolving]
  - Anaemia [Recovering/Resolving]
  - Platelet count decreased [Recovered/Resolved]
  - Renal impairment [Recovered/Resolved]
  - Hyperglycaemia [Recovered/Resolved]
